FAERS Safety Report 11962514 (Version 2)
Quarter: 2016Q1

REPORT INFORMATION
  Report Type: Report from Study
  Country: US (occurrence: US)
  Receive Date: 20160126
  Receipt Date: 20160202
  Transmission Date: 20160526
  Serious: No
  Sender: FDA-Public Use
  Company Number: US-ABBVIE-15K-163-1377227-00

PATIENT
  Age: 68 Year
  Sex: Female

DRUGS (1)
  1. HUMIRA [Suspect]
     Active Substance: ADALIMUMAB
     Indication: CROHN^S DISEASE
     Route: 058
     Dates: start: 20150316, end: 20150512

REACTIONS (16)
  - Eyelids pruritus [Recovering/Resolving]
  - Skin exfoliation [Unknown]
  - Nasal oedema [Recovering/Resolving]
  - Eyelid oedema [Recovering/Resolving]
  - Injection site erythema [Recovered/Resolved]
  - Erythema [Unknown]
  - Injection site warmth [Recovered/Resolved]
  - Eye swelling [Not Recovered/Not Resolved]
  - Injection site pruritus [Recovered/Resolved]
  - Injection site swelling [Recovered/Resolved]
  - Nasal pruritus [Recovering/Resolving]
  - Rash [Not Recovered/Not Resolved]
  - Erythema [Recovering/Resolving]
  - Swelling face [Unknown]
  - Pruritus [Recovering/Resolving]
  - Erythema of eyelid [Recovering/Resolving]

NARRATIVE: CASE EVENT DATE: 2015
